FAERS Safety Report 12680533 (Version 1)
Quarter: 2016Q3

REPORT INFORMATION
  Report Type: Report from Study
  Country: IL (occurrence: IL)
  Receive Date: 20160824
  Receipt Date: 20160824
  Transmission Date: 20161109
  Serious: Yes (Death, Hospitalization)
  Sender: FDA-Public Use
  Company Number: PHHY2016IL115663

PATIENT
  Age: 73 Year
  Sex: Male

DRUGS (1)
  1. SANDOSTATIN LAR DEPOT [Suspect]
     Active Substance: OCTREOTIDE ACETATE
     Indication: NEUROENDOCRINE TUMOUR
     Dosage: 30 MG, QMO (1Q4W)
     Route: 030
     Dates: start: 20160502

REACTIONS (4)
  - Death [Fatal]
  - Intestinal perforation [Unknown]
  - Abdominal pain [Unknown]
  - Dehydration [Unknown]

NARRATIVE: CASE EVENT DATE: 20160810
